FAERS Safety Report 11208148 (Version 1)
Quarter: 2015Q2

REPORT INFORMATION
  Report Type: Spontaneous
  Country: US (occurrence: None)
  Receive Date: 20150619
  Receipt Date: 20150619
  Transmission Date: 20150821
  Serious: Yes (Hospitalization)
  Sender: FDA-Public Use
  Company Number: None

PATIENT
  Age: 84 Year
  Sex: Female
  Weight: 100.6 kg

DRUGS (12)
  1. APAP [Concomitant]
     Active Substance: ACETAMINOPHEN
  2. ROCALTROL [Concomitant]
     Active Substance: CALCITRIOL
  3. LIDEX [Concomitant]
     Active Substance: FLUOCINONIDE
  4. LAC HYDRIN [Concomitant]
  5. ADVAIR HFA [Concomitant]
     Active Substance: FLUTICASONE PROPIONATE\SALMETEROL XINAFOATE
  6. COLACE [Concomitant]
     Active Substance: DOCUSATE SODIUM
  7. LANTUS [Suspect]
     Active Substance: INSULIN GLARGINE
     Indication: DIABETES MELLITUS
     Dosage: CHRONIC
     Route: 058
  8. DOVONOX [Concomitant]
  9. PRICRIT [Concomitant]
  10. GLIMEPIRIDE. [Suspect]
     Active Substance: GLIMEPIRIDE
     Indication: DIABETES MELLITUS
     Dosage: QAM  ?CHRONIC
     Route: 048
  11. ALBUTEROL. [Concomitant]
     Active Substance: ALBUTEROL
  12. PHOSLO [Concomitant]
     Active Substance: CALCIUM ACETATE

REACTIONS (8)
  - Acute kidney injury [None]
  - Urinary tract infection [None]
  - Drug clearance increased [None]
  - Blood pressure increased [None]
  - Lethargy [None]
  - Pneumonia [None]
  - Hypoglycaemia [None]
  - Sepsis [None]

NARRATIVE: CASE EVENT DATE: 20140909
